FAERS Safety Report 15286544 (Version 1)
Quarter: 2018Q3

REPORT INFORMATION
  Report Type: Spontaneous
  Country: US (occurrence: US)
  Receive Date: 20180816
  Receipt Date: 20180816
  Transmission Date: 20181010
  Serious: Yes (Other)
  Sender: FDA-Public Use
  Company Number: PHHY2018US069041

PATIENT
  Age: 36 Year
  Sex: Female

DRUGS (1)
  1. RIFAMPICIN [Suspect]
     Active Substance: RIFAMPIN
     Indication: DISSEMINATED TUBERCULOSIS
     Route: 065

REACTIONS (4)
  - Hyponatraemia [Recovering/Resolving]
  - Skin hyperpigmentation [Recovering/Resolving]
  - Adrenal insufficiency [Recovering/Resolving]
  - Hyperkalaemia [Recovering/Resolving]
